FAERS Safety Report 5482670-2 (Version None)
Quarter: 2007Q4

REPORT INFORMATION
  Report Type: 
  Country: None (occurrence: None)
  Receive Date: 20071011
  Receipt Date: 20071002
  Transmission Date: 20080405
  Serious: Yes (Hospitalization)
  Sender: FDA-Public Use
  Company Number: GB-ELI_LILLY_AND_COMPANY-GB200710000713

PATIENT
  Sex: Female

DRUGS (4)
  1. GEMZAR [Suspect]
     Indication: HODGKIN'S DISEASE
     Dosage: 800 MG/M2, OTHER
     Route: 065
     Dates: start: 20070920
  2. IFOSFAMIDE [Concomitant]
     Dosage: UNK, UNKNOWN
     Route: 065
  3. VINORELBINE [Concomitant]
     Dosage: UNK, UNKNOWN
     Route: 065
  4. MESNA [Concomitant]
     Dosage: UNK, UNKNOWN
     Route: 065

REACTIONS (1)
  - STEVENS-JOHNSON SYNDROME [None]
